FAERS Safety Report 12231155 (Version 1)
Quarter: 2016Q2

REPORT INFORMATION
  Report Type: Spontaneous
  Country: CH (occurrence: CH)
  Receive Date: 20160401
  Receipt Date: 20160401
  Transmission Date: 20160815
  Serious: Yes (Hospitalization)
  Sender: FDA-Public Use
  Company Number: CH-MYLANLABS-2016M1013665

PATIENT

DRUGS (1)
  1. LOPERAMIDE [Suspect]
     Active Substance: LOPERAMIDE
     Indication: DIARRHOEA
     Dosage: 6 MG/DAY. FOR 2 DAYS
     Route: 048

REACTIONS (2)
  - Pancreatitis relapsing [Recovering/Resolving]
  - Pancreatitis acute [Recovering/Resolving]
